FAERS Safety Report 4654132-3 (Version None)
Quarter: 2005Q2

REPORT INFORMATION
  Report Type: 
  Country: None (occurrence: None)
  Receive Date: 20050505
  Receipt Date: 20050425
  Transmission Date: 20051028
  Serious: Yes (Life-Threatening, Hospitalization)
  Sender: FDA-Public Use
  Company Number: JP-MERCK-0504USA05022

PATIENT
  Age: 83 Year
  Sex: Female

DRUGS (20)
  1. COZAAR [Suspect]
     Indication: HYPERTENSION
     Route: 048
     Dates: end: 20050416
  2. GLUCOBAY [Suspect]
     Indication: DIABETES MELLITUS
     Route: 048
     Dates: end: 20050317
  3. AMARYL [Suspect]
     Indication: DIABETES MELLITUS
     Route: 048
     Dates: end: 20050317
  4. MEVALOTIN [Concomitant]
     Indication: HYPERLIPIDAEMIA
     Route: 048
     Dates: end: 20050317
  5. HERBESSER [Concomitant]
     Indication: HYPERTENSION
     Route: 048
  6. HERBESSER [Concomitant]
     Indication: ANGINA PECTORIS
     Route: 048
  7. LASIX [Concomitant]
     Indication: HYPERTENSION
     Route: 042
     Dates: start: 20050318
  8. LASIX [Concomitant]
     Route: 042
     Dates: end: 20050317
  9. LANIRAPID [Concomitant]
     Indication: CARDIAC VALVE DISEASE
     Route: 048
     Dates: end: 20050317
  10. DIGOXIN [Concomitant]
     Indication: CARDIAC VALVE DISEASE
     Route: 042
     Dates: start: 20050318
  11. BUFFERIN [Concomitant]
     Indication: THROMBOSIS PROPHYLAXIS
     Route: 048
  12. BUFFERIN [Concomitant]
     Indication: ANGINA PECTORIS
     Route: 048
  13. CONIEL [Concomitant]
     Indication: HYPERTENSION
     Route: 048
     Dates: end: 20050317
  14. CONIEL [Concomitant]
     Indication: ANGINA PECTORIS
     Route: 048
     Dates: end: 20050317
  15. MEXITIL [Concomitant]
     Indication: ARRHYTHMIA
     Route: 048
     Dates: end: 20050317
  16. TAGAMET [Concomitant]
     Indication: ULCER
     Route: 048
  17. VOLTAREN [Concomitant]
     Indication: ANTIINFLAMMATORY THERAPY
     Route: 048
  18. VOLTAREN [Concomitant]
     Indication: PAIN
     Route: 048
  19. SIGMART [Concomitant]
     Indication: ANGINA PECTORIS
     Route: 048
  20. EBASTEL [Concomitant]
     Route: 048
     Dates: end: 20050317

REACTIONS (3)
  - ADVERSE EVENT [None]
  - ANGINA PECTORIS [None]
  - HYPOGLYCAEMIA [None]
